FAERS Safety Report 7176811-9 (Version None)
Quarter: 2010Q4

REPORT INFORMATION
  Report Type: 
  Country: None (occurrence: None)
  Receive Date: 20101215
  Receipt Date: 20101215
  Transmission Date: 20110411
  Serious: Yes (Life-Threatening, Hospitalization, Disabling, Other)
  Sender: FDA-Public Use
  Company Number: None

PATIENT
  Age: 15 Year
  Sex: Female
  Weight: 72.5755 kg

DRUGS (1)
  1. SOLODYN [Suspect]
     Indication: ACNE
     Dosage: 1 TAB DAILY BUCCAL
     Route: 002
     Dates: start: 20091015, end: 20091118

REACTIONS (8)
  - ANXIETY [None]
  - ATRIAL FIBRILLATION [None]
  - CONVULSION [None]
  - DISCOMFORT [None]
  - HEART RATE INCREASED [None]
  - LOSS OF CONSCIOUSNESS [None]
  - OROPHARYNGEAL PAIN [None]
  - TYPE IV HYPERSENSITIVITY REACTION [None]
